FAERS Safety Report 18992539 (Version 2)
Quarter: 2021Q1

REPORT INFORMATION
  Report Type: Spontaneous
  Country: DE (occurrence: DE)
  Receive Date: 20210310
  Receipt Date: 20210322
  Transmission Date: 20210420
  Serious: Yes (Hospitalization, Other)
  Sender: FDA-Public Use
  Company Number: DE-VISTAPHARM, INC.-VER202103-000898

PATIENT
  Age: 19 Year
  Sex: Male

DRUGS (1)
  1. METHADONE [Suspect]
     Active Substance: METHADONE HYDROCHLORIDE
     Indication: PRODUCT USED FOR UNKNOWN INDICATION
     Dosage: 3 ? 2.5 ML  (LIQUID METHADONE)
     Route: 042

REACTIONS (4)
  - Encephalopathy [Unknown]
  - Drug abuse [Unknown]
  - Hypoxic-ischaemic encephalopathy [Unknown]
  - Toxicity to various agents [Unknown]
